FAERS Safety Report 25329674 (Version 2)
Quarter: 2025Q2

REPORT INFORMATION
  Report Type: Spontaneous
  Country: US (occurrence: US)
  Receive Date: 20250519
  Receipt Date: 20250610
  Transmission Date: 20250716
  Serious: Yes (Death, Hospitalization)
  Sender: ROCHE
  Company Number: US-ROCHE-10000286297

PATIENT
  Sex: Male
  Weight: 72.57 kg

DRUGS (1)
  1. HEMLIBRA [Suspect]
     Active Substance: EMICIZUMAB-KXWH
     Indication: Haemophilia
     Route: 065

REACTIONS (2)
  - Cerebrovascular accident [Unknown]
  - Death [Fatal]

NARRATIVE: CASE EVENT DATE: 20250501
